FAERS Safety Report 5122508-6 (Version None)
Quarter: 2006Q4

REPORT INFORMATION
  Report Type: 
  Country: None (occurrence: None)
  Receive Date: 20061004
  Receipt Date: 20060912
  Transmission Date: 20070319
  Serious: Yes (Hospitalization)
  Sender: FDA-Public Use
  Company Number: AE2006-0690

PATIENT
  Age: 70 Year
  Sex: Male
  Weight: 74.8435 kg

DRUGS (3)
  1. MUCINEX [Suspect]
     Indication: SINUS CONGESTION
     Dosage: 600 MG
     Dates: start: 20060101, end: 20060404
  2. CLARINEX [Suspect]
     Indication: SINUS DISORDER
     Dosage: MG ORAL
     Route: 048
     Dates: start: 20060401, end: 20060401
  3. SINUTAB [Suspect]
     Indication: SINUS DISORDER
     Dosage: UNK
     Route: 048
     Dates: start: 20060401, end: 20060401

REACTIONS (9)
  - ABDOMINAL DISTENSION [None]
  - ATRIOVENTRICULAR BLOCK THIRD DEGREE [None]
  - CARDIAC ARREST [None]
  - CARDIAC FAILURE CONGESTIVE [None]
  - HAEMORRHAGE INTRACRANIAL [None]
  - HYPERTENSION [None]
  - RESPIRATORY FAILURE [None]
  - SINUS DISORDER [None]
  - SUBARACHNOID HAEMORRHAGE [None]
